FAERS Safety Report 9999007 (Version 1)
Quarter: 2014Q1

REPORT INFORMATION
  Report Type: Spontaneous
  Country: US (occurrence: US)
  Receive Date: 20140312
  Receipt Date: 20140312
  Transmission Date: 20141002
  Serious: No
  Sender: FDA-Public Use
  Company Number: US-SHIRE-US201400336

PATIENT
  Sex: 0

DRUGS (3)
  1. LIALDA [Suspect]
     Indication: COLITIS ULCERATIVE
     Dosage: 2.4  G(TWO 1.2 TABLETS TWICE DAILYT, 2X/DAY:BID
     Route: 048
     Dates: end: 20140204
  2. FLONASE                            /00908302/ [Concomitant]
     Indication: SEASONAL ALLERGY
     Dosage: UNK UNK, AS REQ^D (2 SPRAYS EACH NOSTRIL)
     Route: 055
  3. VICODIN [Concomitant]
     Indication: BACK PAIN
     Dosage: 7.5 MG, AS REQ^D (TWO 7.5 MG TABLETS DAILY AS NEEDED)
     Route: 065

REACTIONS (7)
  - Haemorrhage [Recovered/Resolved]
  - Bowel movement irregularity [Recovered/Resolved]
  - Condition aggravated [Recovered/Resolved]
  - Arthritis [Not Recovered/Not Resolved]
  - Abdominal pain [Recovered/Resolved]
  - Drug ineffective [Recovered/Resolved]
  - Drug prescribing error [Recovered/Resolved]
